FAERS Safety Report 5116836-8 (Version None)
Quarter: 2006Q3

REPORT INFORMATION
  Report Type: 
  Country: None (occurrence: None)
  Receive Date: 20060928
  Receipt Date: 20060919
  Transmission Date: 20061208
  Serious: Yes (Other)
  Sender: FDA-Public Use
  Company Number: CN-ABBOTT-06P-035-0344425-00

PATIENT
  Age: 35 Year
  Sex: Female
  Weight: 52.5 kg

DRUGS (19)
  1. SEVOFLURANE [Suspect]
     Indication: MAINTENANCE OF ANAESTHESIA
  2. ALOE VERA [Interacting]
     Indication: PAIN IN EXTREMITY
     Route: 048
  3. PROPOFOL [Concomitant]
     Indication: INDUCTION OF ANAESTHESIA
  4. PROPOFOL [Concomitant]
     Route: 042
  5. FENTANYL [Concomitant]
     Indication: INDUCTION OF ANAESTHESIA
  6. FENTANYL [Concomitant]
  7. ROCURONIUM [Concomitant]
     Indication: INDUCTION OF ANAESTHESIA
  8. CEFAZOLIN [Concomitant]
     Indication: ANTIBIOTIC PROPHYLAXIS
  9. NITROUS OXIDE W/ OXYGEN [Concomitant]
     Indication: MAINTENANCE OF ANAESTHESIA
  10. NITROUS OXIDE W/ OXYGEN [Concomitant]
  11. OXYGEN [Concomitant]
     Indication: MAINTENANCE OF ANAESTHESIA
  12. OXYGEN [Concomitant]
  13. MORPHINE [Concomitant]
     Indication: MAINTENANCE OF ANAESTHESIA
  14. MORPHINE [Concomitant]
  15. NEOSTIGMINE [Concomitant]
     Indication: NEUROMUSCULAR BLOCKADE REVERSAL
  16. ATROPINE [Concomitant]
     Indication: DRUG USE FOR UNKNOWN INDICATION
  17. ISOFLURANE [Concomitant]
     Indication: ANAESTHESIA
  18. EPINEPHRINE [Concomitant]
     Indication: HYPOTENSION
  19. PHENYLEPHRINE [Concomitant]
     Indication: HYPOTENSION

REACTIONS (4)
  - DRUG INTERACTION [None]
  - OPERATIVE HAEMORRHAGE [None]
  - POST PROCEDURAL HAEMORRHAGE [None]
  - WOUND DEHISCENCE [None]
